FAERS Safety Report 5145661-7 (Version None)
Quarter: 2006Q4

REPORT INFORMATION
  Report Type: 
  Country: None (occurrence: None)
  Receive Date: 20061031
  Receipt Date: 20061027
  Transmission Date: 20070319
  Serious: Yes (Other)
  Sender: FDA-Public Use
  Company Number: 008976

PATIENT
  Sex: Female

DRUGS (3)
  1. MEDROXYPROGESTERONE [Suspect]
     Dosage: ORAL
     Route: 048
     Dates: start: 19960101, end: 19991201
  2. ESTRATEST [Suspect]
     Dosage: ORAL
     Route: 048
     Dates: start: 19960101, end: 19991201
  3. PROVERA [Suspect]
     Dosage: ORAL
     Route: 048
     Dates: start: 19960101, end: 19991201

REACTIONS (1)
  - BREAST CANCER [None]
